FAERS Safety Report 5034073-2 (Version None)
Quarter: 2006Q2

REPORT INFORMATION
  Report Type: 
  Country: None (occurrence: None)
  Receive Date: 20060621
  Receipt Date: 20060607
  Transmission Date: 20061013
  Serious: Yes (Death)
  Sender: FDA-Public Use
  Company Number: US-CVT-061275

PATIENT
  Age: 67 Year
  Sex: Male

DRUGS (6)
  1. RANEXA [Suspect]
     Dates: start: 20060428
  2. LISINOPRIL [Concomitant]
  3. LIPITOR [Concomitant]
  4. ASPIRIN [Concomitant]
  5. PLAVIX [Concomitant]
  6. NITROGLYCERIN [Concomitant]

REACTIONS (1)
  - DEATH [None]
